FAERS Safety Report 7060106-8 (Version None)
Quarter: 2010Q4

REPORT INFORMATION
  Report Type: 
  Country: None (occurrence: None)
  Receive Date: 20101025
  Receipt Date: 20101015
  Transmission Date: 20110411
  Serious: Yes (Death)
  Sender: FDA-Public Use
  Company Number: GXKR2010CN11707

PATIENT
  Age: 83 Year
  Sex: Male

DRUGS (5)
  1. LEVOFLOXACIN [Suspect]
     Indication: ANTIBIOTIC THERAPY
     Dosage: 0.2 G, BID
     Route: 042
  2. BENZYLPENICILLIN (NGX) [Suspect]
     Indication: ANTIBIOTIC THERAPY
     Dosage: 6.4 MU THREE TIMES DAILY
     Route: 042
  3. CEFOXITIN [Suspect]
     Indication: ANTIBIOTIC THERAPY
     Dosage: 2 G, BID
     Route: 042
  4. MOXIFLOXACIN [Suspect]
     Indication: ANTIBIOTIC THERAPY
     Dosage: 400 MG/DAY
     Route: 048
  5. BETA-LACTAM ANTIBACTERIALS, PENICILLINS [Suspect]
     Indication: ANTIBIOTIC THERAPY
     Dosage: 1 G, BID (CEFOSELIS)
     Route: 042

REACTIONS (12)
  - ACIDOSIS [None]
  - ASTHENIA [None]
  - COMA [None]
  - CONDITION AGGRAVATED [None]
  - DRUG PRESCRIBING ERROR [None]
  - ENCEPHALOPATHY [None]
  - INAPPROPRIATE SCHEDULE OF DRUG ADMINISTRATION [None]
  - INCORRECT DOSE ADMINISTERED [None]
  - OEDEMA PERIPHERAL [None]
  - RALES [None]
  - RENAL FAILURE [None]
  - TETANY [None]
